FAERS Safety Report 12375229 (Version 1)
Quarter: 2016Q2

REPORT INFORMATION
  Report Type: Spontaneous
  Country: US (occurrence: US)
  Receive Date: 20160517
  Receipt Date: 20160517
  Transmission Date: 20160815
  Serious: Yes (Other)
  Sender: FDA-Public Use
  Company Number: US-009507513-1605USA006058

PATIENT
  Age: 54 Year
  Sex: Male

DRUGS (3)
  1. TEMODAR [Suspect]
     Active Substance: TEMOZOLOMIDE
     Indication: OLIGODENDROGLIOMA
     Dosage: 380 MG DAILY FOR 5 DAYS EVERY 28 DAYS
     Route: 048
     Dates: start: 20151019
  2. TEMODAR [Suspect]
     Active Substance: TEMOZOLOMIDE
     Dosage: UNK
     Route: 048
     Dates: start: 20160208
  3. TEMODAR [Suspect]
     Active Substance: TEMOZOLOMIDE
     Dosage: 2 DOSES, UNK
     Route: 048
     Dates: start: 20160510, end: 20160510

REACTIONS (3)
  - Thrombocytopenia [Recovered/Resolved]
  - Overdose [Unknown]
  - Neutropenia [Recovered/Resolved]

NARRATIVE: CASE EVENT DATE: 20151214
